FAERS Safety Report 8181304-6 (Version None)
Quarter: 2012Q1

REPORT INFORMATION
  Report Type: 
  Country: None (occurrence: None)
  Receive Date: 20120302
  Receipt Date: 20120223
  Transmission Date: 20120608
  Serious: Yes (Disabling, Other)
  Sender: FDA-Public Use
  Company Number: JP-FRI-1000028742

PATIENT
  Age: 79 Year
  Sex: Female

DRUGS (5)
  1. MEMANTINE [Suspect]
     Dosage: 15 MG
  2. MEMANTINE [Suspect]
     Dosage: 20 MG
     Route: 048
     Dates: end: 20120210
  3. MEMANTINE [Suspect]
     Dosage: 10 MG
  4. TIARYL [Concomitant]
  5. MEMANTINE [Suspect]
     Indication: DEMENTIA ALZHEIMER'S TYPE
     Dosage: 5 MG
     Dates: start: 20111201

REACTIONS (3)
  - TOOTH INJURY [None]
  - TRISMUS [None]
  - DYSKINESIA [None]
